FAERS Safety Report 9454556 (Version 1)
Quarter: 2013Q3

REPORT INFORMATION
  Report Type: Spontaneous
  Country: US (occurrence: None)
  Receive Date: 20130808
  Receipt Date: 20130808
  Transmission Date: 20140515
  Serious: Yes (Other)
  Sender: FDA-Public Use
  Company Number: 2013AT000123

PATIENT
  Age: 65 Year
  Sex: Male

DRUGS (1)
  1. TESTOPEL [Suspect]
     Indication: ANDROGEN DEFICIENCY
     Dosage: PELLETS
     Route: 058
     Dates: start: 201305

REACTIONS (1)
  - Cerebrovascular accident [None]
